FAERS Safety Report 20050221 (Version 2)
Quarter: 2021Q4

REPORT INFORMATION
  Report Type: Spontaneous
  Country: US (occurrence: None)
  Receive Date: 20211109
  Receipt Date: 20211221
  Transmission Date: 20220303
  Serious: No
  Sender: FDA-Public Use
  Company Number: 2021A790753

PATIENT
  Age: 268 Month
  Sex: Female
  Weight: 52.2 kg

DRUGS (8)
  1. FASENRA [Suspect]
     Active Substance: BENRALIZUMAB
     Indication: Asthma
     Route: 058
     Dates: start: 202103
  2. FASENRA [Suspect]
     Active Substance: BENRALIZUMAB
     Indication: Eosinophilic oesophagitis
     Route: 058
     Dates: start: 202103
  3. FASENRA [Suspect]
     Active Substance: BENRALIZUMAB
     Indication: Eosinophilic gastritis
     Route: 058
     Dates: start: 202103
  4. FASENRA [Suspect]
     Active Substance: BENRALIZUMAB
     Indication: Eosinophil count abnormal
     Route: 058
     Dates: start: 202103
  5. FASENRA [Suspect]
     Active Substance: BENRALIZUMAB
     Indication: Asthma
     Route: 058
     Dates: start: 202103
  6. FASENRA [Suspect]
     Active Substance: BENRALIZUMAB
     Indication: Eosinophilic oesophagitis
     Route: 058
     Dates: start: 202103
  7. FASENRA [Suspect]
     Active Substance: BENRALIZUMAB
     Indication: Eosinophilic gastritis
     Route: 058
     Dates: start: 202103
  8. FASENRA [Suspect]
     Active Substance: BENRALIZUMAB
     Indication: Eosinophil count abnormal
     Route: 058
     Dates: start: 202103

REACTIONS (6)
  - Injury associated with device [Unknown]
  - Inflammation [Unknown]
  - Illness [Unknown]
  - Eosinophil count increased [Unknown]
  - Needle issue [Unknown]
  - Product use issue [Unknown]

NARRATIVE: CASE EVENT DATE: 20210101
